FAERS Safety Report 8915097 (Version 3)
Quarter: 2013Q1

REPORT INFORMATION
  Report Type: Report from Study
  Country: AU (occurrence: AU)
  Receive Date: 20121119
  Receipt Date: 20130214
  Transmission Date: 20140127
  Serious: Yes (Death)
  Sender: FDA-Public Use
  Company Number: PHHY2012AU104992

PATIENT
  Age: 47 Year
  Sex: Female

DRUGS (9)
  1. CLOZARIL [Suspect]
     Indication: SCHIZOPHRENIA
     Dosage: 300 MG, UNK
     Dates: start: 20060815
  2. CLOZARIL [Suspect]
     Dosage: 100 MG (MANE), 350 MG (NOCTE)
  3. CLOZARIL [Suspect]
     Dosage: 100 MG (MANE), 200 MG (NOCTE)
     Dates: start: 20120828, end: 20120920
  4. HALOPERIDOL [Concomitant]
     Dosage: (5 MG MANE AND 2 MG NOCTE)
     Route: 048
  5. ATENOLOL [Concomitant]
     Indication: TACHYCARDIA
     Dosage: 50 MG, UNK
     Route: 048
     Dates: end: 20120919
  6. ATENOLOL [Concomitant]
     Dosage: 25 MG, BID
  7. SODIUM VALPROATE [Concomitant]
     Dosage: 200 MG, (MANE)
     Route: 048
  8. MIRTAZAPINE [Concomitant]
     Dosage: 45 MG, (NOCTE)
     Route: 048
  9. OXAZEPAM [Concomitant]
     Dosage: 15 MG, BID
     Route: 048

REACTIONS (1)
  - Huntington^s disease [Fatal]
